FAERS Safety Report 17447128 (Version 1)
Quarter: 2020Q1

REPORT INFORMATION
  Report Type: Report from Study
  Country: CO (occurrence: CO)
  Receive Date: 20200221
  Receipt Date: 20200221
  Transmission Date: 20200409
  Serious: Yes (Hospitalization)
  Sender: FDA-Public Use
  Company Number: CO-ELI_LILLY_AND_COMPANY-CO202002001895

PATIENT
  Age: 63 Year
  Sex: Male

DRUGS (1)
  1. CETUXIMAB. [Suspect]
     Active Substance: CETUXIMAB
     Indication: SQUAMOUS CELL CARCINOMA OF HEAD AND NECK
     Dosage: 700 MG, 2/W
     Route: 065
     Dates: start: 20191029

REACTIONS (7)
  - Mouth swelling [Not Recovered/Not Resolved]
  - General physical health deterioration [Unknown]
  - Platelet count decreased [Unknown]
  - Off label use [Unknown]
  - Dermatitis [Unknown]
  - Dysphagia [Not Recovered/Not Resolved]
  - Red blood cell count decreased [Unknown]

NARRATIVE: CASE EVENT DATE: 202001
